FAERS Safety Report 15556311 (Version 2)
Quarter: 2020Q3

REPORT INFORMATION
  Report Type: Report from Study
  Country: MX (occurrence: MX)
  Receive Date: 20181026
  Receipt Date: 20200822
  Transmission Date: 20201102
  Serious: Yes (Other)
  Sender: FDA-Public Use
  Company Number: PHHY2018MX135121

PATIENT
  Age: 79 Year
  Sex: Female

DRUGS (1)
  1. EXELON PATCH [Suspect]
     Active Substance: RIVASTIGMINE
     Indication: PRODUCT USED FOR UNKNOWN INDICATION
     Dosage: 4.6 MG, QD PATCH 5 (CM2)
     Route: 062

REACTIONS (5)
  - Epistaxis [Recovered/Resolved]
  - Hypertension [Unknown]
  - Ill-defined disorder [Unknown]
  - Thrombosis [Unknown]
  - Confusional state [Unknown]

NARRATIVE: CASE EVENT DATE: 20181016
